FAERS Safety Report 13855036 (Version 1)
Quarter: 2017Q3

REPORT INFORMATION
  Report Type: Spontaneous
  Country: US (occurrence: US)
  Receive Date: 20170810
  Receipt Date: 20170810
  Transmission Date: 20171127
  Serious: Yes (Hospitalization, Other)
  Sender: FDA-Public Use
  Company Number: US-PFIZER INC-2017341549

PATIENT
  Age: 55 Year
  Sex: Male
  Weight: 163.26 kg

DRUGS (3)
  1. LYRICA [Suspect]
     Active Substance: PREGABALIN
     Indication: NEUROPATHY PERIPHERAL
     Dosage: 100 MG, 3X/DAY
     Route: 048
     Dates: start: 2015, end: 20170729
  2. CLONAZEPAM. [Concomitant]
     Active Substance: CLONAZEPAM
     Indication: PANIC ATTACK
     Dosage: 2 MG, 3X/DAY
  3. CLONAZEPAM. [Concomitant]
     Active Substance: CLONAZEPAM
     Indication: NEUROPATHY PERIPHERAL
     Dosage: 1 MG, AS NEEDED (FOUR TIMES A DAY AND A FIFTH DOSE AS NEEDED)

REACTIONS (4)
  - Cystitis [Unknown]
  - Blood urine [Unknown]
  - Penile wart [Unknown]
  - Bladder disorder [Unknown]
